FAERS Safety Report 15000464 (Version 1)
Quarter: 2018Q2

REPORT INFORMATION
  Report Type: Spontaneous
  Country: FR (occurrence: FR)
  Receive Date: 20180612
  Receipt Date: 20180612
  Transmission Date: 20180711
  Serious: Yes (Other)
  Sender: FDA-Public Use
  Company Number: FR-PFIZER INC-2018230425

PATIENT
  Age: 22 Year
  Sex: Female
  Weight: 110 kg

DRUGS (6)
  1. DIAMOX SEQUELS [Concomitant]
     Active Substance: ACETAZOLAMIDE
  2. OPTIMIZETTE [Concomitant]
     Active Substance: DESOGESTREL
  3. MIGPRIV [Concomitant]
     Active Substance: ASPIRIN LYSINE\METOCLOPRAMIDE HYDROCHLORIDE
  4. PAMIDRONATE DISODIUM. [Suspect]
     Active Substance: PAMIDRONATE DISODIUM
     Indication: FIBROUS DYSPLASIA OF BONE
     Dosage: 60 MG, 1X/DAY
     Route: 042
     Dates: start: 20180117, end: 20180119
  5. DIFFU K [Concomitant]
     Active Substance: POTASSIUM CHLORIDE
  6. ACUPAN [Concomitant]
     Active Substance: NEFOPAM HYDROCHLORIDE

REACTIONS (1)
  - Pleural effusion [Not Recovered/Not Resolved]

NARRATIVE: CASE EVENT DATE: 20180227
